FAERS Safety Report 7060552-2 (Version None)
Quarter: 2010Q4

REPORT INFORMATION
  Report Type: 
  Country: None (occurrence: None)
  Receive Date: 20101025
  Receipt Date: 20101012
  Transmission Date: 20110411
  Serious: Yes (Other)
  Sender: FDA-Public Use
  Company Number: US-ELI_LILLY_AND_COMPANY-US201008008522

PATIENT
  Sex: Female

DRUGS (7)
  1. FORTEO [Suspect]
     Indication: OSTEOPOROSIS
     Dosage: 20 UG, DAILY (1/D)
  2. ADVAIR DISKUS 100/50 [Concomitant]
  3. SPIRIVA [Concomitant]
  4. HYDROCHLOROTHIAZIDE [Concomitant]
  5. SINGULAIR [Concomitant]
  6. ALPRAZOLAM [Concomitant]
     Indication: ANXIETY
  7. PROAIR HFA [Concomitant]

REACTIONS (2)
  - IMPAIRED HEALING [None]
  - PAIN IN EXTREMITY [None]
